FAERS Safety Report 4987138-5 (Version None)
Quarter: 2006Q2

REPORT INFORMATION
  Report Type: 
  Country: None (occurrence: None)
  Receive Date: 20060427
  Receipt Date: 20060111
  Transmission Date: 20061013
  Serious: No
  Sender: FDA-Public Use
  Company Number: DL2006057

PATIENT
  Age: 46 Year
  Sex: Female

DRUGS (2)
  1. MIFEPRISTONE TABLETS, 200 MG (DANCO LABS) [Suspect]
     Indication: ABORTION INDUCED
     Dosage: 600 MG, ORAL
     Route: 048
     Dates: start: 20050223
  2. MISOPROSTOL [Suspect]
     Dosage: 400 MCG, ORAL
     Route: 048
     Dates: start: 20050225

REACTIONS (1)
  - ABORTION INCOMPLETE [None]
